FAERS Safety Report 5604745-7 (Version None)
Quarter: 2008Q1

REPORT INFORMATION
  Report Type: 
  Country: None (occurrence: None)
  Receive Date: 20080128
  Receipt Date: 20080123
  Transmission Date: 20080703
  Serious: Yes (Hospitalization, Other)
  Sender: FDA-Public Use
  Company Number: PHEH2008US01163

PATIENT
  Sex: Female

DRUGS (2)
  1. SINEMET [Suspect]
  2. STALEVO 100 [Suspect]
     Indication: PARKINSON'S DISEASE

REACTIONS (3)
  - CONFUSIONAL STATE [None]
  - DRUG INEFFECTIVE [None]
  - FALL [None]
